FAERS Safety Report 24379098 (Version 1)
Quarter: 2024Q3

REPORT INFORMATION
  Report Type: Spontaneous
  Country: US (occurrence: None)
  Receive Date: 20240929
  Receipt Date: 20240929
  Transmission Date: 20241017
  Serious: Yes (Hospitalization, Other)
  Sender: Public
  Company Number: None

PATIENT
  Age: 49 Year
  Sex: Male
  Weight: 72 kg

DRUGS (17)
  1. OXBRYTA [Suspect]
     Active Substance: VOXELOTOR
     Indication: Sickle cell disease
     Dosage: 90 TABLETS DAILY ORAL
     Route: 048
     Dates: start: 20230625, end: 20240929
  2. OXBRYTA [Concomitant]
     Active Substance: VOXELOTOR
  3. NORCO [Concomitant]
     Active Substance: ACETAMINOPHEN\HYDROCODONE BITARTRATE
  4. HYDROXYUREA [Concomitant]
     Active Substance: HYDROXYUREA
  5. FENTANYL TRANSDERMAL SYSTEM [Concomitant]
     Active Substance: FENTANYL
  6. OMEPRAZOLE [Concomitant]
     Active Substance: OMEPRAZOLE
  7. AMLODIPINE [Concomitant]
     Active Substance: AMLODIPINE BESYLATE
  8. FLUTICASONE [Concomitant]
     Active Substance: FLUTICASONE
  9. AZELASTINE [Concomitant]
     Active Substance: AZELASTINE\AZELASTINE HYDROCHLORIDE
  10. ARTIFICIAL TEARS [Concomitant]
  11. FOLIC ACID [Concomitant]
     Active Substance: FOLIC ACID
  12. MULTIVITAMIN [Concomitant]
  13. VITAMIN C [Concomitant]
     Active Substance: ASCORBIC ACID
  14. CHLORHEXIDINE GLUCONATE [Concomitant]
     Active Substance: CHLORHEXIDINE GLUCONATE
  15. ROSEMARY ESSENTIAL OILS [Concomitant]
  16. PEPPERMINT ESSENTIAL OILS [Concomitant]
  17. LAVENDER ESSENTIALS OILS [Concomitant]

REACTIONS (8)
  - Fatigue [None]
  - Back pain [None]
  - Arthralgia [None]
  - Arthralgia [None]
  - Asthenia [None]
  - Decreased appetite [None]
  - Depression [None]
  - Haematochezia [None]

NARRATIVE: CASE EVENT DATE: 20240925
